FAERS Safety Report 5995375-6 (Version None)
Quarter: 2008Q4

REPORT INFORMATION
  Report Type: 
  Country: None (occurrence: None)
  Receive Date: 20081212
  Receipt Date: 20081201
  Transmission Date: 20090506
  Serious: Yes (Hospitalization)
  Sender: FDA-Public Use
  Company Number: TR-TEVA-181901ISR

PATIENT
  Age: 64 Year
  Sex: Male

DRUGS (1)
  1. METHOTREXATE [Suspect]
     Route: 048

REACTIONS (7)
  - HYPOTENSION [None]
  - JAUNDICE [None]
  - MEDICATION ERROR [None]
  - PANCYTOPENIA [None]
  - PYREXIA [None]
  - SKIN ULCER [None]
  - TACHYCARDIA [None]
